FAERS Safety Report 21075677 (Version 1)
Quarter: 2022Q3

REPORT INFORMATION
  Report Type: Spontaneous
  Country: US (occurrence: None)
  Receive Date: 20220712
  Receipt Date: 20220712
  Transmission Date: 20221026
  Serious: Yes (Hospitalization)
  Sender: FDA-Public Use
  Company Number: None

PATIENT
  Age: 75 Year
  Sex: Female
  Weight: 86.91 kg

DRUGS (26)
  1. CAPECITABINE [Suspect]
     Active Substance: CAPECITABINE
     Indication: Colon cancer
     Dosage: FREQUENCY : TWICE A DAY;?
     Route: 048
     Dates: start: 202205
  2. ALBUTEROL [Concomitant]
     Active Substance: ALBUTEROL
  3. AMLODIPINE [Concomitant]
     Active Substance: AMLODIPINE BESYLATE
  4. ASPIRIN [Concomitant]
     Active Substance: ASPIRIN
  5. AZITHROMYCIN [Concomitant]
     Active Substance: AZITHROMYCIN
  6. CYCLOBENZAPRINE [Concomitant]
     Active Substance: CYCLOBENZAPRINE
  7. DICLOFENAC [Concomitant]
     Active Substance: DICLOFENAC
  8. DULCOLAX NOS [Concomitant]
     Active Substance: BISACODYL OR DOCUSATE SODIUM
  9. ONDANSETRON [Concomitant]
     Active Substance: ONDANSETRON
  10. FLONASE [Concomitant]
     Active Substance: FLUTICASONE PROPIONATE
  11. FUROSEMIDE [Concomitant]
     Active Substance: FUROSEMIDE
  12. IPRATROPIUM [Concomitant]
     Active Substance: IPRATROPIUM
  13. JANUVIA [Concomitant]
     Active Substance: SITAGLIPTIN PHOSPHATE
  14. LIDOCAINE\PRILOCAINE [Concomitant]
     Active Substance: LIDOCAINE\PRILOCAINE
  15. METFORMIN [Concomitant]
     Active Substance: METFORMIN HYDROCHLORIDE
  16. MILK OF MAGNESIA [Concomitant]
     Active Substance: MAGNESIUM HYDROXIDE
  17. MONTELUKAST [Concomitant]
     Active Substance: MONTELUKAST SODIUM
  18. OXYCODONE [Concomitant]
     Active Substance: OXYCODONE
  19. PANTOPRAZOLE [Concomitant]
     Active Substance: PANTOPRAZOLE
  20. PEG 3350 [Concomitant]
     Active Substance: POLYETHYLENE GLYCOL 3350
  21. POTASSIUM [Concomitant]
     Active Substance: POTASSIUM
  22. PROCHLORPERAZINE [Concomitant]
     Active Substance: PROCHLORPERAZINE
  23. SYNTHROID [Concomitant]
     Active Substance: LEVOTHYROXINE SODIUM
  24. TRELEGY ELLIPTA [Concomitant]
     Active Substance: FLUTICASONE FUROATE\UMECLIDINIUM BROMIDE\VILANTEROL TRIFENATATE
  25. VITAMIN D3 [Concomitant]
     Active Substance: CHOLECALCIFEROL
  26. VOLTAREN [Concomitant]
     Active Substance: DICLOFENAC SODIUM

REACTIONS (1)
  - Hospitalisation [None]
